FAERS Safety Report 4928943-0 (Version None)
Quarter: 2006Q1

REPORT INFORMATION
  Report Type: 
  Country: None (occurrence: None)
  Receive Date: 20060301
  Receipt Date: 20060216
  Transmission Date: 20060701
  Serious: Yes (Hospitalization)
  Sender: FDA-Public Use
  Company Number: FR-SOLVAY-00206000663

PATIENT
  Age: 58 Year
  Sex: Female

DRUGS (8)
  1. COVERSYL [Suspect]
     Indication: ILL-DEFINED DISORDER
     Dosage: DAILY DOSE:  UNKNOWN
     Route: 048
     Dates: end: 20060123
  2. SURBRONC [Concomitant]
     Indication: ILL-DEFINED DISORDER
     Dosage: DAILY DOSE:  UNKNOWN
     Route: 065
  3. CORDARONE [Concomitant]
     Indication: ILL-DEFINED DISORDER
     Dosage: DAILY DOSE:  UNKNOWN
     Route: 065
  4. CARDENSIEL [Interacting]
     Indication: ILL-DEFINED DISORDER
     Dosage: DAILY DOSE: 1.25 MILLIGRAM(S)
     Route: 065
     Dates: end: 20060123
  5. DIGOXIN [Interacting]
     Indication: ILL-DEFINED DISORDER
     Dosage: DAILY DOSE: 0.5 DOSAGE FORM
     Route: 048
     Dates: start: 20060112, end: 20060123
  6. COUMADIN [Concomitant]
     Indication: ILL-DEFINED DISORDER
     Dosage: DAILY DOSE:  UNKNOWN
     Route: 065
     Dates: end: 20060123
  7. MOVICOL [Concomitant]
     Indication: ILL-DEFINED DISORDER
     Dosage: DAILY DOSE:  UNKNOWN
     Route: 065
  8. IMOVANE [Concomitant]
     Indication: ILL-DEFINED DISORDER
     Dosage: DAILY DOSE:  UNKNOWN
     Route: 065

REACTIONS (8)
  - ATRIAL FIBRILLATION [None]
  - BRADYCARDIA [None]
  - CARDIOGENIC SHOCK [None]
  - DRUG INTERACTION [None]
  - HYPOTENSION [None]
  - NAUSEA [None]
  - OVERDOSE [None]
  - SYNCOPE [None]
